FAERS Safety Report 7030987-2 (Version None)
Quarter: 2010Q4

REPORT INFORMATION
  Report Type: 
  Country: None (occurrence: None)
  Receive Date: 20101006
  Receipt Date: 20100406
  Transmission Date: 20110411
  Serious: Yes (Other)
  Sender: FDA-Public Use
  Company Number: US-BRISTOL-MYERS SQUIBB COMPANY-15050081

PATIENT

DRUGS (1)
  1. KENALOG-40 [Suspect]
     Dosage: ROUTE- INTRAVITREAL.
     Route: 031

REACTIONS (1)
  - PSEUDOENDOPHTHALMITIS [None]
